FAERS Safety Report 6745403-5 (Version None)
Quarter: 2010Q2

REPORT INFORMATION
  Report Type: 
  Country: None (occurrence: None)
  Receive Date: 20100528
  Receipt Date: 20100522
  Transmission Date: 20101027
  Serious: Yes (Death, Other)
  Sender: FDA-Public Use
  Company Number: US-BAYER-201026350GPV

PATIENT
  Age: 44 Year
  Sex: Female

DRUGS (5)
  1. FLUDARABINE [Suspect]
     Indication: STEM CELL TRANSPLANT
     Dosage: FIVE DOSES
     Route: 042
  2. MELPHALAN HYDROCHLORIDE [Suspect]
     Indication: MYCOSIS FUNGOIDES
  3. TACROLIMUS [Concomitant]
     Indication: PROPHYLAXIS AGAINST GRAFT VERSUS HOST DISEASE
     Dosage: ON DAYS 1, 3, 6 AND 11
  4. MINI METHOTREXATE [Concomitant]
     Indication: PROPHYLAXIS AGAINST GRAFT VERSUS HOST DISEASE
     Dosage: ON DAYS 1, 3, 6 AND 11
  5. NEUPOGEN [Concomitant]
     Dosage: FROM DAY 7 UNTIL ENGRAFTMENT

REACTIONS (4)
  - CHRONIC GRAFT VERSUS HOST DISEASE [None]
  - NON-SMALL CELL LUNG CANCER METASTATIC [None]
  - PNEUMOCYSTIS JIROVECI PNEUMONIA [None]
  - RESPIRATORY SYNCYTIAL VIRUS INFECTION [None]
